FAERS Safety Report 4707098-1 (Version None)
Quarter: 2005Q3

REPORT INFORMATION
  Report Type: 
  Country: None (occurrence: None)
  Receive Date: 20050701
  Receipt Date: 20050620
  Transmission Date: 20060218
  Serious: Yes (Death)
  Sender: FDA-Public Use
  Company Number: 2005-DE-02333GD

PATIENT

DRUGS (5)
  1. OXAZEPAM [Suspect]
  2. DIAZEPAM [Suspect]
  3. OXYCODONE (OXYCODONE) [Suspect]
  4. TEMAZEPAM [Suspect]
  5. RANITIDINE [Suspect]

REACTIONS (2)
  - DRUG TOXICITY [None]
  - POLYSUBSTANCE ABUSE [None]
